FAERS Safety Report 7523350-9 (Version None)
Quarter: 2011Q2

REPORT INFORMATION
  Report Type: 
  Country: None (occurrence: None)
  Receive Date: 20110603
  Receipt Date: 20110525
  Transmission Date: 20111010
  Serious: Yes (Death)
  Sender: FDA-Public Use
  Company Number: A0929944A

PATIENT
  Age: 66 Year
  Sex: Male

DRUGS (1)
  1. ZOFRAN [Suspect]
     Dosage: 8MG UNKNOWN
     Route: 065
     Dates: start: 20110513

REACTIONS (1)
  - DEATH [None]
